FAERS Safety Report 6329633-2 (Version None)
Quarter: 2009Q3

REPORT INFORMATION
  Report Type: 
  Country: None (occurrence: None)
  Receive Date: 20090824
  Receipt Date: 20090714
  Transmission Date: 20100115
  Serious: Yes (Other)
  Sender: FDA-Public Use
  Company Number: DSA_34025_2009

PATIENT
  Age: 57 Year
  Sex: Female

DRUGS (4)
  1. APLENZIN [Suspect]
     Indication: MAJOR DEPRESSION
     Dosage: (522 MG QD)
     Dates: start: 20090430, end: 20090501
  2. PAXIL [Concomitant]
  3. DEPAKOTE ER [Concomitant]
  4. WELLBUTRIN XL [Concomitant]

REACTIONS (1)
  - STEVENS-JOHNSON SYNDROME [None]
